FAERS Safety Report 8910075 (Version 3)
Quarter: 2012Q4

REPORT INFORMATION
  Report Type: 
  Country: FR (occurrence: FR)
  Receive Date: 20121115
  Receipt Date: 20121207
  Transmission Date: 20130627
  Serious: Yes (Other)
  Sender: FDA-Public Use
  Company Number: FR-JNJFOC-20121101435

PATIENT
  Age: 54 Year
  Sex: Female
  Weight: 90 kg

DRUGS (13)
  1. XARELTO [Suspect]
     Indication: EMBOLISM VENOUS
     Route: 048
     Dates: start: 20121020, end: 20121023
  2. XARELTO [Suspect]
     Indication: CELLULITIS
     Route: 048
     Dates: start: 20121020, end: 20121023
  3. XARELTO [Suspect]
     Indication: DEEP VEIN THROMBOSIS
     Route: 048
     Dates: start: 20121020, end: 20121023
  4. IBUPROFEN [Interacting]
     Indication: PRODUCT USED FOR UNKNOWN INDICATION
     Route: 065
  5. SERESTA [Concomitant]
     Route: 065
  6. TEMESTA [Concomitant]
     Route: 065
  7. VITAMIN B12 (CYANOCOBALAMIN AND ANALOGUES) [Concomitant]
     Route: 065
  8. ALDACTONE [Concomitant]
     Route: 065
  9. LYRICA [Concomitant]
     Route: 065
  10. AMOXY [Concomitant]
     Route: 065
  11. SKENAN [Concomitant]
     Route: 065
  12. COVERSYL [Concomitant]
     Route: 065
  13. PROTON PUMP INHIBITORS [Concomitant]
     Route: 065

REACTIONS (4)
  - Anaemia [Recovering/Resolving]
  - Haematochezia [Recovering/Resolving]
  - Melaena [Recovering/Resolving]
  - Drug interaction [Unknown]
